FAERS Safety Report 6484817-8 (Version None)
Quarter: 2009Q4

REPORT INFORMATION
  Report Type: 
  Country: None (occurrence: None)
  Receive Date: 20091209
  Receipt Date: 20090825
  Transmission Date: 20100525
  Serious: Yes (Other)
  Sender: FDA-Public Use
  Company Number: A0803843A

PATIENT
  Age: 48 Year
  Sex: Female
  Weight: 100 kg

DRUGS (10)
  1. AVANDAMET [Suspect]
     Route: 048
     Dates: end: 20060524
  2. AVANDIA [Suspect]
     Dosage: 4MG TWICE PER DAY
     Route: 048
     Dates: end: 20071201
  3. AMBIEN [Concomitant]
  4. COZAAR [Concomitant]
  5. GLYBURIDE [Concomitant]
  6. HYDROCHLOROTHIAZIDE [Concomitant]
  7. LIPITOR [Concomitant]
  8. METFORMIN HCL [Concomitant]
  9. LIPITOR [Concomitant]
  10. ZETIA [Concomitant]

REACTIONS (1)
  - CARDIAC FAILURE CONGESTIVE [None]
